FAERS Safety Report 12844578 (Version 2)
Quarter: 2018Q2

REPORT INFORMATION
  Report Type: Spontaneous
  Country: US (occurrence: US)
  Receive Date: 20161013
  Receipt Date: 20180507
  Transmission Date: 20180711
  Serious: No
  Sender: FDA-Public Use
  Company Number: US-ROCHE-1739823

PATIENT

DRUGS (3)
  1. ESBRIET [Suspect]
     Active Substance: PIRFENIDONE
     Indication: IDIOPATHIC PULMONARY FIBROSIS
     Dosage: 3 PILLS
     Route: 048
     Dates: start: 201506
  2. NATTOKINASE [Concomitant]
     Active Substance: NATTOKINASE
     Route: 065
     Dates: start: 201507
  3. SERRAPEPTASE [Concomitant]
     Active Substance: SERRAPEPTASE
     Route: 065
     Dates: start: 201507

REACTIONS (2)
  - Feeling abnormal [Unknown]
  - Fatigue [Unknown]
